FAERS Safety Report 5625969-9 (Version None)
Quarter: 2008Q1

REPORT INFORMATION
  Report Type: 
  Country: None (occurrence: None)
  Receive Date: 20080213
  Receipt Date: 20080213
  Transmission Date: 20080703
  Serious: No
  Sender: FDA-Public Use
  Company Number: None

PATIENT
  Sex: Male
  Weight: 74.8435 kg

DRUGS (1)
  1. FLOMAX [Suspect]
     Indication: BENIGN PROSTATIC HYPERPLASIA
     Dosage: 0.4 MG ONCE DAILY ORAL
     Route: 048
     Dates: start: 20060101

REACTIONS (2)
  - FLOPPY IRIS SYNDROME [None]
  - MIOSIS [None]
